FAERS Safety Report 8979314 (Version 2)
Quarter: 2013Q1

REPORT INFORMATION
  Report Type: Spontaneous
  Country: US (occurrence: US)
  Receive Date: 20121221
  Receipt Date: 20130215
  Transmission Date: 20140127
  Serious: Yes (Hospitalization)
  Sender: FDA-Public Use
  Company Number: US-NOVOPROD-362692

PATIENT
  Age: 18 Year
  Sex: Male
  Weight: 196.19 kg

DRUGS (4)
  1. NORDITROPIN FLEXPRO 6.7 MG/ML [Suspect]
     Indication: GROWTH HORMONE DEFICIENCY
     Route: 058
  2. DESMOPRESSIN [Concomitant]
     Indication: PRODUCT USED FOR UNKNOWN INDICATION
  3. LEVOXYL [Concomitant]
     Indication: PRODUCT USED FOR UNKNOWN INDICATION
  4. ZOLOFT [Concomitant]
     Indication: PRODUCT USED FOR UNKNOWN INDICATION

REACTIONS (2)
  - Influenza [Recovered/Resolved]
  - Headache [Not Recovered/Not Resolved]
